FAERS Safety Report 10871034 (Version 3)
Quarter: 2015Q2

REPORT INFORMATION
  Report Type: Spontaneous
  Country: BE (occurrence: BE)
  Receive Date: 20150226
  Receipt Date: 20150420
  Transmission Date: 20150821
  Serious: Yes (Other)
  Sender: FDA-Public Use
  Company Number: BE-PFIZER INC-2015069814

PATIENT
  Sex: Female

DRUGS (5)
  1. ASAFLOW [Concomitant]
     Active Substance: ASPIRIN
     Dosage: UNK
     Dates: end: 20150105
  2. LORMETAZEPAM [Concomitant]
     Active Substance: LORMETAZEPAM
     Dosage: UNK
  3. PANTOMED [Suspect]
     Active Substance: DEXPANTHENOL
     Indication: DYSPEPSIA
     Dosage: 40 MG, 1X/DAY
     Route: 048
     Dates: start: 201412, end: 20150105
  4. L-THYROXINE /00068001/ [Concomitant]
     Dosage: UNK
  5. BRONCHOSEDAL [Concomitant]
     Active Substance: DEXTROMETHORPHAN HYDROBROMIDE
     Dosage: UNK

REACTIONS (3)
  - Nephritis allergic [Recovering/Resolving]
  - Blood disorder [Recovering/Resolving]
  - Tubulointerstitial nephritis [Recovering/Resolving]
